FAERS Safety Report 9525714 (Version 1)
Quarter: 2013Q1

REPORT INFORMATION
  Report Type: Spontaneous
  Country: US (occurrence: None)
  Receive Date: 20130314
  Receipt Date: 20130314
  Transmission Date: 20140127
  Serious: No
  Sender: FDA-Public Use
  Company Number: 1212USA005924

PATIENT
  Age: 54 Year
  Sex: Male

DRUGS (3)
  1. VICTRELIS (BOCEPREVIR) CAPSULE [Suspect]
     Indication: HEPATITIS C
     Route: 048
  2. RIBASPHERE (RIBAVIRIN) [Suspect]
  3. PEGASYS (INTERFERON ALFA-2A) [Suspect]

REACTIONS (3)
  - Product quality issue [None]
  - Drug dose omission [None]
  - No adverse event [None]
